FAERS Safety Report 9009953 (Version 1)
Quarter: 2013Q1

REPORT INFORMATION
  Report Type: Spontaneous
  Country: US (occurrence: US)
  Receive Date: 20130111
  Receipt Date: 20130111
  Transmission Date: 20140127
  Serious: Yes (Other)
  Sender: FDA-Public Use
  Company Number: CHPA2013US000564

PATIENT
  Age: 24 Year
  Sex: Male

DRUGS (1)
  1. GAS-X [Suspect]
     Indication: DISCOMFORT
     Dosage: 125 DF, UNK
     Route: 048
     Dates: start: 201209, end: 201209

REACTIONS (5)
  - Swelling face [Recovered/Resolved]
  - Fatigue [Recovered/Resolved]
  - Facial pain [Recovered/Resolved]
  - Cough [Recovered/Resolved]
  - Off label use [Unknown]
